FAERS Safety Report 7474613-7 (Version None)
Quarter: 2011Q2

REPORT INFORMATION
  Report Type: 
  Country: None (occurrence: None)
  Receive Date: 20110503
  Receipt Date: 20110418
  Transmission Date: 20111010
  Serious: Yes (Hospitalization)
  Sender: FDA-Public Use
  Company Number: AUR-APL-2011-01510

PATIENT
  Age: 46 Year
  Sex: Female

DRUGS (14)
  1. STATIN [Concomitant]
  2. BETA BLOCKER [Concomitant]
  3. INSULIN ASPART [Suspect]
     Dosage: 27 IU;
  4. METFORMIN HCL [Suspect]
     Dosage: 500 MG,
     Dates: start: 20110110, end: 20110110
  5. ASPIRIN [Concomitant]
  6. ANGIOTENSIN CONVERTING ENZYME INHIBITOR [Concomitant]
  7. LISINOPRIL [Suspect]
  8. BLINDED THERAPY [Suspect]
     Indication: TYPE 2 DIABETES MELLITUS
     Dosage: 5 MG,
     Dates: start: 20100826
  9. DIURETICS [Concomitant]
  10. CELEBREX [Suspect]
     Indication: ARTHRITIS
  11. HYPERTENSION AGENT [Concomitant]
  12. SPIRONOLACTONE [Suspect]
  13. HYDROCHLOROTHIAZIDE [Suspect]
  14. INSULINE GLARGINE [Suspect]
     Dosage: 20 IU,

REACTIONS (3)
  - DEHYDRATION [None]
  - CAMPYLOBACTER GASTROENTERITIS [None]
  - RENAL FAILURE ACUTE [None]
